FAERS Safety Report 7606925-8 (Version None)
Quarter: 2011Q3

REPORT INFORMATION
  Report Type: 
  Country: None (occurrence: None)
  Receive Date: 20110713
  Receipt Date: 20110712
  Transmission Date: 20111222
  Serious: Yes (Other)
  Sender: FDA-Public Use
  Company Number: CH-ROCHE-789189

PATIENT
  Age: 64 Year
  Sex: Female

DRUGS (2)
  1. BEVACIZUMAB [Suspect]
     Indication: BREAST CANCER
     Route: 042
     Dates: start: 20110505, end: 20110623
  2. PACLITAXEL [Concomitant]
     Indication: BREAST CANCER
     Dosage: FREQUENCY: WEEK
     Dates: start: 20110505, end: 20110623

REACTIONS (1)
  - BREAST CANCER [None]
